FAERS Safety Report 20521083 (Version 2)
Quarter: 2022Q1

REPORT INFORMATION
  Report Type: Spontaneous
  Country: ES (occurrence: ES)
  Receive Date: 20220226
  Receipt Date: 20220301
  Transmission Date: 20220424
  Serious: Yes (Other)
  Sender: FDA-Public Use
  Company Number: ES-009507513-2202ESP007398

PATIENT
  Age: 81 Year

DRUGS (8)
  1. SITAGLIPTIN PHOSPHATE [Suspect]
     Active Substance: SITAGLIPTIN PHOSPHATE
     Indication: Type 2 diabetes mellitus
     Dosage: UNK
     Route: 048
  2. MESALAMINE [Concomitant]
     Active Substance: MESALAMINE
  3. FOLIC ACID [Concomitant]
     Active Substance: FOLIC ACID
  4. FUROSEMIDE [Concomitant]
     Active Substance: FUROSEMIDE
  5. EDOXABAN [Concomitant]
     Active Substance: EDOXABAN
  6. LOSARTAN [Concomitant]
     Active Substance: LOSARTAN
  7. HYDROCHLOROTHIAZIDE [Concomitant]
     Active Substance: HYDROCHLOROTHIAZIDE
  8. DIGOXIN [Concomitant]
     Active Substance: DIGOXIN

REACTIONS (3)
  - Diabetes mellitus inadequate control [Recovered/Resolved]
  - Drug ineffective [Unknown]
  - Chorea [Recovered/Resolved]
